FAERS Safety Report 14496466 (Version 1)
Quarter: 2018Q1

REPORT INFORMATION
  Report Type: Spontaneous
  Country: FR (occurrence: FR)
  Receive Date: 20180207
  Receipt Date: 20180207
  Transmission Date: 20180509
  Serious: Yes (Hospitalization)
  Sender: FDA-Public Use
  Company Number: FR-MERCK KGAA-2041547

PATIENT
  Age: 86 Year
  Sex: Female

DRUGS (10)
  1. NOVOTHYROX [Suspect]
     Active Substance: LEVOTHYROXINE SODIUM
  2. ATORVASTATIN [Concomitant]
     Active Substance: ATORVASTATIN
  3. CALCIDOSE(LEKOVIT CA) [Concomitant]
  4. KARDEGIC [Concomitant]
     Active Substance: ASPIRIN DL-LYSINE
  5. FELODIPINE. [Concomitant]
     Active Substance: FELODIPINE
  6. UN-ALFA [Concomitant]
     Active Substance: ALFACALCIDOL
     Dates: start: 20180119
  7. NOVOTHYROX [Suspect]
     Active Substance: LEVOTHYROXINE SODIUM
  8. PANTOPRAZOLE [Concomitant]
     Active Substance: PANTOPRAZOLE
  9. NOVOTHYROX [Suspect]
     Active Substance: LEVOTHYROXINE SODIUM
     Indication: POST PROCEDURAL HYPOTHYROIDISM
     Route: 048
  10. NOVOTHYROX [Suspect]
     Active Substance: LEVOTHYROXINE SODIUM

REACTIONS (5)
  - Vomiting [None]
  - Spinal fracture [None]
  - Rib fracture [None]
  - Fall [None]
  - Head injury [None]

NARRATIVE: CASE EVENT DATE: 201801
